FAERS Safety Report 5206404-1 (Version None)
Quarter: 2006Q4

REPORT INFORMATION
  Report Type: 
  Country: None (occurrence: None)
  Receive Date: 20061026
  Receipt Date: 20060823
  Transmission Date: 20070319
  Serious: Yes (Other)
  Sender: FDA-Public Use
  Company Number: 2006103307

PATIENT
  Age: 80 Year
  Sex: Male
  Weight: 70.3075 kg

DRUGS (8)
  1. LYRICA [Suspect]
     Indication: PAIN
     Dosage: 300 MG (150 MG, 2 IN 1 D)
     Dates: start: 20060101
  2. LASIX [Concomitant]
  3. SINEMET [Concomitant]
  4. ALL OTHER THERAPEUTIC PRODUCTS (ALL OTHER THERAPEUTIC PRODUCTS) [Concomitant]
  5. MULTIVITAMIN [Concomitant]
  6. WARFARIN SODIUM [Concomitant]
  7. ASPIRIN [Concomitant]
  8. MARCROGOL (MACROGOL) [Concomitant]

REACTIONS (3)
  - OEDEMA [None]
  - PAIN [None]
  - WEIGHT INCREASED [None]
